FAERS Safety Report 14014062 (Version 3)
Quarter: 2018Q2

REPORT INFORMATION
  Report Type: Report from Study
  Country: CA (occurrence: CA)
  Receive Date: 20170927
  Receipt Date: 20180502
  Transmission Date: 20180711
  Serious: Yes (Other)
  Sender: FDA-Public Use
  Company Number: CA-AMGEN-CANSL2017141877

PATIENT
  Age: 73 Year
  Sex: Female

DRUGS (11)
  1. ASAPHEN [Concomitant]
     Active Substance: ASPIRIN
     Dosage: 80 MG, UNK
  2. SOLIFENACIN [Concomitant]
     Active Substance: SOLIFENACIN
     Dosage: UNK
  3. SIMVASTATIN. [Concomitant]
     Active Substance: SIMVASTATIN
     Indication: BLOOD CHOLESTEROL ABNORMAL
     Dosage: UNK, 20-40 MG
  4. CALCIUM [Concomitant]
     Active Substance: CALCIUM
     Dosage: UNK
  5. REPATHA [Suspect]
     Active Substance: EVOLOCUMAB
     Indication: BLOOD CHOLESTEROL ABNORMAL
     Dosage: 140 MG/ML, UNK
     Route: 065
     Dates: start: 20160722
  6. GINGKO BILOBA [Concomitant]
     Active Substance: GINKGO
     Dosage: UNK
  7. CELECOXIB. [Concomitant]
     Active Substance: CELECOXIB
     Dosage: 100 MG, BID
  8. TELMISARTAN. [Concomitant]
     Active Substance: TELMISARTAN
     Dosage: UNK, 80/12.5 MG
  9. ASA [Concomitant]
     Active Substance: ASPIRIN
     Dosage: UNK
  10. JAMP CALCIUM [Concomitant]
     Dosage: 500 MG, UNK
  11. TRAMADOL. [Concomitant]
     Active Substance: TRAMADOL
     Dosage: UNK (AS NEEDED)

REACTIONS (1)
  - Amnesia [Not Recovered/Not Resolved]

NARRATIVE: CASE EVENT DATE: 201706
